FAERS Safety Report 11451233 (Version 1)
Quarter: 2015Q3

REPORT INFORMATION
  Report Type: Spontaneous
  Country: US (occurrence: US)
  Receive Date: 20150903
  Receipt Date: 20150903
  Transmission Date: 20151125
  Serious: Yes (Other)
  Sender: FDA-Public Use
  Company Number: US-BEH-2015053457

PATIENT
  Sex: Female
  Weight: 81.1 kg

DRUGS (11)
  1. RUCONEST [Concomitant]
     Active Substance: HUMAN C1-ESTERASE INHIBITOR
     Route: 042
  2. DIPHENHYDRAMINE. [Concomitant]
     Active Substance: DIPHENHYDRAMINE
     Indication: ANAPHYLACTIC REACTION
     Route: 048
  3. SODIUM CHLORIDE. [Concomitant]
     Active Substance: SODIUM CHLORIDE
     Dosage: 0.9%; AS DIRECTED
     Route: 042
  4. CEFTIN [Concomitant]
     Active Substance: CEFUROXIME AXETIL
     Dosage: ONE DOSE AS DIRECTED
     Route: 048
  5. PREDNISONE. [Concomitant]
     Active Substance: PREDNISONE
     Indication: ANAPHYLACTIC REACTION
     Route: 048
  6. EPIPEN [Concomitant]
     Active Substance: EPINEPHRINE
     Indication: ANAPHYLACTIC REACTION
     Route: 030
  7. BERINERT [Suspect]
     Active Substance: HUMAN C1-ESTERASE INHIBITOR
     Indication: COMPLEMENT FACTOR ABNORMAL
     Dosage: 500 UNIT VIAL; AS DIRECTED
     Route: 042
  8. KALBITOR [Concomitant]
     Active Substance: ECALLANTIDE
     Route: 058
  9. BERINERT [Suspect]
     Active Substance: HUMAN C1-ESTERASE INHIBITOR
     Indication: COMPLEMENT FACTOR ABNORMAL
     Dosage: 500 UNIT VIAL; AS DIRECTED
     Route: 042
  10. FIRAZYR [Concomitant]
     Active Substance: ICATIBANT ACETATE
     Route: 058
  11. STERILE WATER [Concomitant]
     Active Substance: WATER
     Dosage: 1 VIAL FOR RECONSTITUTION

REACTIONS (3)
  - Hereditary angioedema [Unknown]
  - Peripheral swelling [Unknown]
  - Drug ineffective [Unknown]
